FAERS Safety Report 4949406-2 (Version None)
Quarter: 2006Q1

REPORT INFORMATION
  Report Type: 
  Country: None (occurrence: None)
  Receive Date: 20060315
  Receipt Date: 20060303
  Transmission Date: 20060701
  Serious: Yes (Hospitalization, Other)
  Sender: FDA-Public Use
  Company Number: 2006AL000612

PATIENT
  Age: 80 Year
  Sex: Male

DRUGS (2)
  1. ALBUTEROL SULFATE [Suspect]
     Dosage: INH
     Route: 055
  2. IPRATROPIUM BROMIDE [Suspect]
     Dosage: INH
     Route: 055

REACTIONS (6)
  - BRONCHOSPASM PARADOXICAL [None]
  - CONDITION AGGRAVATED [None]
  - DYSPNOEA [None]
  - OXYGEN SATURATION DECREASED [None]
  - PHYSICAL EXAMINATION ABNORMAL [None]
  - TACHYPNOEA [None]
